FAERS Safety Report 13075471 (Version 1)
Quarter: 2016Q4

REPORT INFORMATION
  Report Type: Spontaneous
  Country: US (occurrence: US)
  Receive Date: 20161229
  Receipt Date: 20161229
  Transmission Date: 20170207
  Serious: No
  Sender: FDA-Public Use
  Company Number: None

PATIENT

DRUGS (9)
  1. HEPARIN [Suspect]
     Active Substance: HEPARIN SODIUM
     Indication: THROMBOSIS PROPHYLAXIS
     Route: 058
     Dates: start: 20160726, end: 20160801
  2. CYCLOBENZAPRINE [Concomitant]
     Active Substance: CYCLOBENZAPRINE
  3. PANTOPRAZOLE [Concomitant]
     Active Substance: PANTOPRAZOLE SODIUM
  4. AMLODIPINE [Concomitant]
     Active Substance: AMLODIPINE BESYLATE
  5. ENOXAPARIN [Suspect]
     Active Substance: ENOXAPARIN
     Indication: DEEP VEIN THROMBOSIS
     Route: 058
     Dates: start: 20160801, end: 20160806
  6. WARFARIN [Concomitant]
     Active Substance: WARFARIN
  7. CEFTRIAXONE. [Concomitant]
     Active Substance: CEFTRIAXONE
  8. MULTIIVTAMIN THERAPERUTIC TAB [Concomitant]
  9. CLINDAMYCIN. [Concomitant]
     Active Substance: CLINDAMYCIN

REACTIONS (4)
  - Spinal cord abscess [None]
  - Heparin-induced thrombocytopenia [None]
  - Back pain [None]
  - Tooth infection [None]

NARRATIVE: CASE EVENT DATE: 20160809
